FAERS Safety Report 7377357-5 (Version None)
Quarter: 2011Q1

REPORT INFORMATION
  Report Type: 
  Country: None (occurrence: None)
  Receive Date: 20110328
  Receipt Date: 20110322
  Transmission Date: 20110831
  Serious: No
  Sender: FDA-Public Use
  Company Number: US-PFIZER INC-2011028473

PATIENT
  Sex: Female
  Weight: 61.224 kg

DRUGS (2)
  1. LORATADINE AND PSEUDOEPHEDRINE SULFATE [Suspect]
     Indication: NASAL DECONGESTION THERAPY
     Dosage: 120 MG, 1X/DAY
     Route: 048
     Dates: start: 20110207, end: 20110207
  2. SUDAFED 12 HOUR [Suspect]
     Dosage: UNK
     Route: 065

REACTIONS (7)
  - DRUG INTOLERANCE [None]
  - SENSATION OF HEAVINESS [None]
  - GAIT DISTURBANCE [None]
  - STRESS [None]
  - HYPERSENSITIVITY [None]
  - MALAISE [None]
  - INSOMNIA [None]
